FAERS Safety Report 9270392 (Version 2)
Quarter: 2013Q2

REPORT INFORMATION
  Report Type: Spontaneous
  Country: BE (occurrence: BE)
  Receive Date: 20130503
  Receipt Date: 20130619
  Transmission Date: 20140414
  Serious: Yes (Other)
  Sender: FDA-Public Use
  Company Number: BE-ASTRAZENECA-2013SE28581

PATIENT
  Age: 719 Month
  Sex: Male

DRUGS (4)
  1. SEROQUEL XR [Suspect]
     Route: 048
  2. SEROQUEL XR [Suspect]
     Route: 048
  3. REMERGON [Concomitant]
  4. ALPRAZOLAM [Concomitant]

REACTIONS (1)
  - Myocardial infarction [Recovered/Resolved]
